FAERS Safety Report 8480133-3 (Version None)
Quarter: 2012Q2

REPORT INFORMATION
  Report Type: 
  Country: None (occurrence: None)
  Receive Date: 20120629
  Receipt Date: 20120627
  Transmission Date: 20120825
  Serious: Yes (Hospitalization)
  Sender: FDA-Public Use
  Company Number: FR-ROCHE-1082555

PATIENT
  Age: 49 Year
  Sex: Male

DRUGS (8)
  1. ETOPOPHOS PRESERVATIVE FREE [Concomitant]
  2. CYCLOPHOSPHAMIDE [Concomitant]
  3. METHYLPREDNISOLONE [Suspect]
     Indication: PREMEDICATION
     Route: 042
     Dates: start: 20120207
  4. ACETAMINOPHEN [Suspect]
     Indication: PREMEDICATION
     Route: 048
     Dates: start: 20120207, end: 20120207
  5. POLARAMINE [Suspect]
     Indication: PREMEDICATION
     Route: 042
     Dates: start: 20120207, end: 20120207
  6. DOXORUBICIN HCL [Concomitant]
  7. MABTHERA [Suspect]
     Indication: B-CELL LYMPHOMA
     Route: 042
     Dates: start: 20120207, end: 20120207
  8. MABTHERA [Suspect]
     Dates: start: 20120208

REACTIONS (2)
  - HYPERTHERMIA [None]
  - CHILLS [None]
